FAERS Safety Report 16510943 (Version 1)
Quarter: 2019Q3

REPORT INFORMATION
  Report Type: Report from Study
  Country: US (occurrence: US)
  Receive Date: 20190702
  Receipt Date: 20190702
  Transmission Date: 20191004
  Serious: Yes (Other)
  Sender: FDA-Public Use
  Company Number: US-ROCHE-2342404

PATIENT
  Age: 65 Year
  Sex: Male
  Weight: 83.99 kg

DRUGS (3)
  1. OCREVUS [Suspect]
     Active Substance: OCRELIZUMAB
     Indication: SECONDARY PROGRESSIVE MULTIPLE SCLEROSIS
     Dosage: HALF DOSE ;ONGOING: NO
     Route: 042
     Dates: start: 20170518
  2. OCREVUS [Suspect]
     Active Substance: OCRELIZUMAB
     Dosage: HALF DOSE ;ONGOING: NO
     Route: 042
     Dates: start: 20170601
  3. OCREVUS [Suspect]
     Active Substance: OCRELIZUMAB
     Indication: OFF LABEL USE
     Dosage: FULL DOSES ;ONGOING: NO
     Route: 042
     Dates: start: 20181205

REACTIONS (5)
  - Off label use [Unknown]
  - Intentional product use issue [Unknown]
  - Haemorrhage [Unknown]
  - Nasopharyngitis [Recovered/Resolved]
  - Balance disorder [Not Recovered/Not Resolved]

NARRATIVE: CASE EVENT DATE: 201712
